FAERS Safety Report 23183478 (Version 1)
Quarter: 2023Q4

REPORT INFORMATION
  Report Type: Spontaneous
  Country: AR (occurrence: AR)
  Receive Date: 20231114
  Receipt Date: 20231114
  Transmission Date: 20240109
  Serious: Yes (Hospitalization)
  Sender: FDA-Public Use
  Company Number: AR-SA-SAC20230809001088

PATIENT

DRUGS (2)
  1. LARONIDASE [Suspect]
     Active Substance: LARONIDASE
     Indication: Mucopolysaccharidosis I
     Dosage: 3 DF, Q15D
     Route: 042
     Dates: start: 20220526, end: 20230727
  2. LARONIDASE [Suspect]
     Active Substance: LARONIDASE
     Dosage: 3 DF, Q15D
     Route: 042
     Dates: start: 2023

REACTIONS (7)
  - Bronchospasm [Not Recovered/Not Resolved]
  - Chest discomfort [Not Recovered/Not Resolved]
  - Secretion discharge [Not Recovered/Not Resolved]
  - Cough [Not Recovered/Not Resolved]
  - Pyrexia [Not Recovered/Not Resolved]
  - Product prescribing error [Unknown]
  - Inappropriate schedule of product administration [Unknown]

NARRATIVE: CASE EVENT DATE: 20220526
